FAERS Safety Report 13033351 (Version 1)
Quarter: 2016Q4

REPORT INFORMATION
  Report Type: Spontaneous
  Country: GB (occurrence: GB)
  Receive Date: 20161216
  Receipt Date: 20161216
  Transmission Date: 20170207
  Serious: Yes (Hospitalization, Other)
  Sender: FDA-Public Use
  Company Number: GB-SUN PHARMACEUTICAL INDUSTRIES LTD-2016R1-129556

PATIENT
  Age: 3 Year
  Sex: Male

DRUGS (1)
  1. TOPIRAMATE. [Suspect]
     Active Substance: TOPIRAMATE
     Indication: PARTIAL SEIZURES
     Dosage: 6.5 MG/KG, DAILY
     Route: 065

REACTIONS (1)
  - Nephrolithiasis [Recovered/Resolved]
